FAERS Safety Report 6697388-8 (Version None)
Quarter: 2010Q2

REPORT INFORMATION
  Report Type: 
  Country: None (occurrence: None)
  Receive Date: 20100426
  Receipt Date: 20100412
  Transmission Date: 20101027
  Serious: Yes (Death, Hospitalization)
  Sender: FDA-Public Use
  Company Number: GB-MYLANLABS-2010S1006171

PATIENT
  Age: 46 Year
  Sex: Male

DRUGS (7)
  1. DEXAMETHASONE [Suspect]
     Indication: FATIGUE
     Route: 065
  2. DEXAMETHASONE [Suspect]
     Route: 065
  3. MOVICOL [Suspect]
     Indication: CONSTIPATION
     Route: 048
  4. CARBOPLATIN [Suspect]
     Indication: MALIGNANT MELANOMA
     Dosage: TWO CYCLES
     Route: 065
  5. NAPROXEN [Suspect]
     Indication: PAIN
     Route: 065
  6. MORPHINE [Concomitant]
     Indication: PAIN
     Route: 065
  7. WARFARIN SODIUM [Concomitant]

REACTIONS (11)
  - AGGRESSION [None]
  - AGITATION [None]
  - BACK PAIN [None]
  - CONSTIPATION [None]
  - HAEMOGLOBIN DECREASED [None]
  - HYPERKALAEMIA [None]
  - HYPONATRAEMIA [None]
  - HYPOTENSION [None]
  - INTERNATIONAL NORMALISED RATIO INCREASED [None]
  - TACHYCARDIA [None]
  - TUMOUR HAEMORRHAGE [None]
